FAERS Safety Report 6072161-2 (Version None)
Quarter: 2009Q1

REPORT INFORMATION
  Report Type: 
  Country: None (occurrence: None)
  Receive Date: 20090210
  Receipt Date: 20090209
  Transmission Date: 20090719
  Serious: Yes (Life-Threatening)
  Sender: FDA-Public Use
  Company Number: B0551363A

PATIENT
  Age: 90 Year
  Sex: Female

DRUGS (6)
  1. ARTIST [Suspect]
     Indication: HYPERTENSION
     Dosage: 10MG TWICE PER DAY
     Route: 048
     Dates: start: 20081129, end: 20081204
  2. POTASSIUM CHLORIDE [Concomitant]
  3. BLOPRESS [Concomitant]
     Dates: start: 20081123, end: 20081204
  4. ZESTRIL [Concomitant]
     Dates: start: 20081123, end: 20081204
  5. DIART [Concomitant]
     Dates: start: 20081123, end: 20081204
  6. ATELEC [Concomitant]
     Dates: start: 20081123, end: 20081204

REACTIONS (3)
  - BRADYCARDIA [None]
  - CARDIOMEGALY [None]
  - OEDEMA PERIPHERAL [None]
